FAERS Safety Report 9264104 (Version 2)
Quarter: 2013Q2

REPORT INFORMATION
  Report Type: Spontaneous
  Country: US (occurrence: US)
  Receive Date: 20130430
  Receipt Date: 20130613
  Transmission Date: 20140414
  Serious: No
  Sender: FDA-Public Use
  Company Number: US-009507513-1304USA017660

PATIENT
  Age: 63 Year
  Sex: Female
  Weight: 62.59 kg

DRUGS (1)
  1. CLARITIN-D-12 [Suspect]
     Indication: SEASONAL ALLERGY
     Dosage: UNK, BID
     Route: 048
     Dates: start: 20130410, end: 201304

REACTIONS (1)
  - Insomnia [Recovered/Resolved]
